FAERS Safety Report 20655758 (Version 2)
Quarter: 2022Q2

REPORT INFORMATION
  Report Type: Spontaneous
  Country: CN (occurrence: CN)
  Receive Date: 20220330
  Receipt Date: 20220408
  Transmission Date: 20220721
  Serious: Yes (Hospitalization, Other)
  Sender: FDA-Public Use
  Company Number: CN-009507513-2203CHN009412

PATIENT
  Sex: Male

DRUGS (1)
  1. KEYTRUDA [Suspect]
     Active Substance: PEMBROLIZUMAB
     Indication: Non-small cell lung cancer
     Dosage: 200 MILLIGRAM, Q3W
     Dates: start: 20211129

REACTIONS (7)
  - Ketoacidosis [Unknown]
  - Blood glucose increased [Not Recovered/Not Resolved]
  - Pancreatitis necrotising [Unknown]
  - Blood glucose fluctuation [Unknown]
  - Emotional disorder [Unknown]
  - Nausea [Recovered/Resolved]
  - Vomiting [Recovered/Resolved]

NARRATIVE: CASE EVENT DATE: 20220301
